FAERS Safety Report 7055493-0 (Version None)
Quarter: 2010Q4

REPORT INFORMATION
  Report Type: 
  Country: None (occurrence: None)
  Receive Date: 20101021
  Receipt Date: 20101011
  Transmission Date: 20110411
  Serious: Yes (Death)
  Sender: FDA-Public Use
  Company Number: US-BAXTER-2010BH026196

PATIENT
  Age: 81 Year
  Sex: Female
  Weight: 61 kg

DRUGS (12)
  1. BREVIBLOC [Suspect]
     Indication: HYPERTENSION
     Dosage: DAILY DOSE: 875 MG
     Route: 042
     Dates: start: 19970306, end: 19970306
  2. BREVIBLOC [Suspect]
     Indication: TACHYCARDIA
     Dosage: DAILY DOSE: 875 MG
     Route: 042
     Dates: start: 19970306, end: 19970306
  3. SUPRANE [Concomitant]
     Indication: PRODUCT USED FOR UNKNOWN INDICATION
     Route: 055
     Dates: start: 19970306, end: 19970306
  4. FENTANYL [Concomitant]
     Indication: PRODUCT USED FOR UNKNOWN INDICATION
     Dates: start: 19970306, end: 19970306
  5. DIPRIVAN [Concomitant]
     Indication: PRODUCT USED FOR UNKNOWN INDICATION
     Dates: start: 19970306, end: 19970306
  6. ZEMURON [Concomitant]
     Indication: PRODUCT USED FOR UNKNOWN INDICATION
     Dates: start: 19970306, end: 19970306
  7. VASOTEC [Concomitant]
     Indication: PRODUCT USED FOR UNKNOWN INDICATION
     Dates: start: 19970306, end: 19970306
  8. VERSED [Concomitant]
     Indication: PRODUCT USED FOR UNKNOWN INDICATION
     Dates: start: 19970306, end: 19970306
  9. EPHEDRINE SUL CAP [Concomitant]
     Indication: PRODUCT USED FOR UNKNOWN INDICATION
     Dates: start: 19970306, end: 19970306
  10. NEOSTIGMINE [Concomitant]
     Indication: PRODUCT USED FOR UNKNOWN INDICATION
     Dates: start: 19970306, end: 19970306
  11. ROBINUL [Concomitant]
     Indication: PRODUCT USED FOR UNKNOWN INDICATION
     Dates: start: 19970306, end: 19970306
  12. PARVOCET [Concomitant]
     Indication: PRODUCT USED FOR UNKNOWN INDICATION
     Dates: start: 19970306, end: 19970306

REACTIONS (2)
  - ACCIDENTAL OVERDOSE [None]
  - DRUG TOXICITY [None]
